FAERS Safety Report 5206116-4 (Version None)
Quarter: 2007Q1

REPORT INFORMATION
  Report Type: 
  Country: None (occurrence: None)
  Receive Date: 20070111
  Receipt Date: 20070105
  Transmission Date: 20070707
  Serious: Yes (Disabling)
  Sender: FDA-Public Use
  Company Number: JP-BRISTOL-MYERS SQUIBB COMPANY-13636634

PATIENT
  Age: 68 Year
  Sex: Male

DRUGS (4)
  1. TAXOL [Suspect]
     Indication: GASTRIC CANCER
     Route: 041
     Dates: start: 20061222, end: 20061222
  2. DECADRON [Concomitant]
     Dates: start: 20061222, end: 20061222
  3. GASTER [Concomitant]
     Dates: start: 20061222, end: 20061222
  4. POLARAMINE [Concomitant]
     Dates: start: 20061222, end: 20061222

REACTIONS (1)
  - RETINAL HAEMORRHAGE [None]
